FAERS Safety Report 7811535-3 (Version None)
Quarter: 2011Q4

REPORT INFORMATION
  Report Type: 
  Country: None (occurrence: None)
  Receive Date: 20111013
  Receipt Date: 20111005
  Transmission Date: 20120403
  Serious: Yes (Hospitalization)
  Sender: FDA-Public Use
  Company Number: FR-JNJFOC-20111004084

PATIENT
  Age: 49 Year
  Sex: Female

DRUGS (3)
  1. PREZISTA [Suspect]
     Indication: HIV TEST POSITIVE
     Route: 048
     Dates: start: 20110701, end: 20110708
  2. NORVIR [Suspect]
     Indication: HIV TEST POSITIVE
     Route: 048
     Dates: start: 20110701, end: 20110708
  3. TRUVADA [Suspect]
     Indication: HIV TEST POSITIVE
     Route: 048
     Dates: start: 20110701, end: 20110708

REACTIONS (6)
  - FACE OEDEMA [None]
  - EYE IRRITATION [None]
  - PYREXIA [None]
  - ERYTHEMA [None]
  - RASH PUSTULAR [None]
  - RASH MACULAR [None]
